FAERS Safety Report 19462108 (Version 1)
Quarter: 2021Q2

REPORT INFORMATION
  Report Type: Spontaneous
  Country: CN (occurrence: CN)
  Receive Date: 20210625
  Receipt Date: 20210625
  Transmission Date: 20210717
  Serious: Yes (Other)
  Sender: FDA-Public Use
  Company Number: CN-FRESENIUS KABI-FK202106369

PATIENT
  Age: 52 Year
  Sex: Female
  Weight: 62 kg

DRUGS (5)
  1. VITAMINS NOS [Suspect]
     Active Substance: VITAMINS
     Indication: MALNUTRITION
     Route: 041
     Dates: start: 20210609, end: 20210611
  2. CYSTEINE HYDROCHLORIDE/GLYCINE/ALANINE/SERINE/ASPARTIC ACID/TYROSINE/LEUCINE/METHIONINE/PHENYLALANIN [COMPOUND AMINO ACID (18AA?V?SF)] [Suspect]
     Active Substance: AMINO ACIDS, SOURCE UNSPECIFIED
     Indication: MALNUTRITION
     Route: 041
     Dates: start: 20210609, end: 20210611
  3. GLUCOSE [Suspect]
     Active Substance: DEXTROSE
     Indication: MALNUTRITION
     Route: 041
     Dates: start: 20210609, end: 20210611
  4. INTRALIPID [Suspect]
     Active Substance: EGG PHOSPHOLIPIDS\GLYCERIN\SOYBEAN OIL
     Indication: MALNUTRITION
     Dosage: FORM OF ADMIN. WAS REPORTED AS INJECTION IN THE SOURCE.
     Route: 041
     Dates: start: 20210609, end: 20210611
  5. INSULIN [Suspect]
     Active Substance: INSULIN NOS
     Indication: MALNUTRITION
     Route: 041
     Dates: start: 20210609, end: 20210611

REACTIONS (4)
  - Palpitations [Recovering/Resolving]
  - Nausea [Recovering/Resolving]
  - Dizziness [Recovering/Resolving]
  - Hyperhidrosis [Recovering/Resolving]

NARRATIVE: CASE EVENT DATE: 20210609
